FAERS Safety Report 20310330 (Version 2)
Quarter: 2022Q1

REPORT INFORMATION
  Report Type: Report from Study
  Country: US (occurrence: US)
  Receive Date: 20220107
  Receipt Date: 20220114
  Transmission Date: 20220424
  Serious: No
  Sender: FDA-Public Use
  Company Number: US-REGENERON PHARMACEUTICALS, INC.-2021-120364

PATIENT
  Age: 58 Year
  Sex: Female

DRUGS (1)
  1. CASIRIVIMAB\IMDEVIMAB [Suspect]
     Active Substance: CASIRIVIMAB\IMDEVIMAB
     Indication: COVID-19
     Dosage: 2400 MG, SINGLE
     Route: 042
     Dates: start: 20211220, end: 20211220

REACTIONS (3)
  - Incorrect dose administered [Unknown]
  - Hypoaesthesia [Unknown]
  - Hypotension [Unknown]

NARRATIVE: CASE EVENT DATE: 20211220
